FAERS Safety Report 7282327-1 (Version None)
Quarter: 2011Q1

REPORT INFORMATION
  Report Type: 
  Country: None (occurrence: None)
  Receive Date: 20110209
  Receipt Date: 20110202
  Transmission Date: 20110831
  Serious: Yes (Other)
  Sender: FDA-Public Use
  Company Number: TR-PFIZER INC-2011023816

PATIENT
  Age: 84 Year
  Sex: Female

DRUGS (6)
  1. COMBIVENT [Concomitant]
  2. TEFILIN [Concomitant]
  3. CLEXANE [Concomitant]
  4. ULTRAVIST 150 [Concomitant]
  5. TYGACIL [Suspect]
     Indication: PYREXIA
     Dosage: 50 MG, 2X/DAY
     Route: 042
     Dates: end: 20110118
  6. PANTOPRAZOLE [Concomitant]
     Dosage: 40 MG, UNK
     Route: 042

REACTIONS (2)
  - BLOOD UREA INCREASED [None]
  - BLOOD CREATININE INCREASED [None]
